FAERS Safety Report 16217294 (Version 1)
Quarter: 2019Q2

REPORT INFORMATION
  Report Type: Spontaneous
  Country: US (occurrence: US)
  Receive Date: 20190315
  Receipt Date: 20190315
  Transmission Date: 20190711
  Serious: Yes (Hospitalization)
  Sender: FDA-Public Use
  Company Number: None

PATIENT
  Age: 82 Year
  Sex: Male

DRUGS (10)
  1. TORSEMIDE. [Concomitant]
     Active Substance: TORSEMIDE
  2. ADCIRCA [Suspect]
     Active Substance: TADALAFIL
     Indication: PULMONARY ARTERIAL HYPERTENSION
     Dosage: ?          OTHER DOSE:1 TABLET;?
     Route: 048
     Dates: start: 20181030
  3. NYSTATIN. [Concomitant]
     Active Substance: NYSTATIN
  4. CARVEDILOL. [Concomitant]
     Active Substance: CARVEDILOL
  5. DOXYCYCL HYC [Concomitant]
  6. SIMVASTATIN. [Concomitant]
     Active Substance: SIMVASTATIN
  7. LEVOFLOXACIN. [Concomitant]
     Active Substance: LEVOFLOXACIN
  8. ALPRAZOLAM. [Concomitant]
     Active Substance: ALPRAZOLAM
  9. SPIRONOLACT [Concomitant]
     Active Substance: SPIRONOLACTONE
  10. ALBUTEROL. [Concomitant]
     Active Substance: ALBUTEROL

REACTIONS (2)
  - Cardiac failure congestive [None]
  - Influenza [None]

NARRATIVE: CASE EVENT DATE: 20190308
